FAERS Safety Report 15049940 (Version 1)
Quarter: 2018Q2

REPORT INFORMATION
  Report Type: Spontaneous
  Country: FI (occurrence: FI)
  Receive Date: 20180622
  Receipt Date: 20180622
  Transmission Date: 20180711
  Serious: Yes (Life-Threatening)
  Sender: FDA-Public Use
  Company Number: FI-ASTRAZENECA-2018SE79609

PATIENT
  Age: 43 Year
  Sex: Female

DRUGS (1)
  1. KETIPINOR [Suspect]
     Active Substance: QUETIAPINE FUMARATE
     Indication: DEPRESSION
     Route: 048
     Dates: start: 20180110, end: 201806

REACTIONS (4)
  - Depression [Recovering/Resolving]
  - Suicidal ideation [Recovering/Resolving]
  - Abdominal pain lower [Recovering/Resolving]
  - Insomnia [Recovering/Resolving]

NARRATIVE: CASE EVENT DATE: 20180110
